FAERS Safety Report 4531976-X (Version None)
Quarter: 2004Q4

REPORT INFORMATION
  Report Type: 
  Country: None (occurrence: None)
  Receive Date: 20041217
  Receipt Date: 20021127
  Transmission Date: 20050328
  Serious: Yes (Other)
  Sender: FDA-Public Use
  Company Number: 2004-DE-05182DE

PATIENT
  Age: 59 Year
  Sex: Male

DRUGS (5)
  1. SPIRIVA [Suspect]
     Indication: EMPHYSEMA
     Dosage: 1 PUF (NR, 1 IN 1 D); IN
     Route: 055
     Dates: start: 20021016, end: 20021111
  2. CALCILAC (NR) [Concomitant]
  3. PANTOZOL (PANTOPRAZOLE SODIUM) (NR) [Concomitant]
  4. MORPHIN (NR) [Concomitant]
  5. L-THYROXIN (NR) [Concomitant]

REACTIONS (2)
  - CARDIAC FAILURE [None]
  - PULMONARY OEDEMA [None]
